FAERS Safety Report 9301718 (Version 4)
Quarter: 2014Q2

REPORT INFORMATION
  Report Type: Report from Study
  Country: CA (occurrence: CA)
  Receive Date: 20130521
  Receipt Date: 20140507
  Transmission Date: 20141212
  Serious: Yes (Life-Threatening, Hospitalization, Other)
  Sender: FDA-Public Use
  Company Number: CA-ROCHE-1224906

PATIENT
  Age: 50 Year
  Sex: Female
  Weight: 81.6 kg

DRUGS (13)
  1. RITUXAN [Suspect]
     Indication: RHEUMATOID ARTHRITIS
     Route: 042
     Dates: start: 20121105
  2. RITUXAN [Suspect]
     Route: 042
     Dates: start: 20121119
  3. PREDNISONE [Suspect]
     Indication: PRODUCT USED FOR UNKNOWN INDICATION
     Route: 065
  4. METHOTREXATE [Concomitant]
     Route: 065
  5. DIPHENHYDRAMINE HCL [Concomitant]
     Indication: PREMEDICATION
     Route: 048
     Dates: start: 20121105
  6. ACETAMINOPHEN [Concomitant]
     Indication: PREMEDICATION
     Route: 048
     Dates: start: 20121105
  7. METHYLPREDNISOLONE [Concomitant]
     Indication: PREMEDICATION
     Route: 042
     Dates: start: 20121105
  8. COVERSYL [Concomitant]
     Route: 065
  9. LEUCOVORIN [Concomitant]
     Route: 065
  10. SIMVASTATIN [Concomitant]
     Route: 065
  11. HUMALOG INSULIN [Concomitant]
     Route: 065
  12. LANTUS [Concomitant]
     Route: 065
  13. TRAMADOL [Concomitant]

REACTIONS (4)
  - Septic shock [Unknown]
  - Diabetic coma [Recovering/Resolving]
  - Blood viscosity increased [Unknown]
  - Arthralgia [Not Recovered/Not Resolved]
